FAERS Safety Report 25549136 (Version 2)
Quarter: 2025Q3

REPORT INFORMATION
  Report Type: Report from Study
  Country: JP (occurrence: JP)
  Receive Date: 20250714
  Receipt Date: 20250911
  Transmission Date: 20251021
  Serious: Yes (Hospitalization)
  Sender: ABBVIE
  Company Number: JP-ABBVIE-6183725

PATIENT
  Age: 73 Year
  Sex: Female

DRUGS (6)
  1. VYALEV [Suspect]
     Active Substance: FOSCARBIDOPA\FOSLEVODOPA
     Indication: Parkinson^s disease
     Route: 058
     Dates: start: 20250310
  2. VYALEV [Suspect]
     Active Substance: FOSCARBIDOPA\FOSLEVODOPA
     Route: 058
  3. VYALEV [Suspect]
     Active Substance: FOSCARBIDOPA\FOSLEVODOPA
     Route: 058
  4. VYALEV [Suspect]
     Active Substance: FOSCARBIDOPA\FOSLEVODOPA
     Route: 058
  5. VYALEV [Suspect]
     Active Substance: FOSCARBIDOPA\FOSLEVODOPA
     Route: 058
  6. BENSERAZIDE HYDROCHLORIDE\LEVODOPA [Concomitant]
     Active Substance: BENSERAZIDE HYDROCHLORIDE\LEVODOPA
     Indication: Parkinson^s disease
     Dosage: 1 TABLET
     Route: 048

REACTIONS (13)
  - Fracture [Not Recovered/Not Resolved]
  - Infusion site reaction [Recovered/Resolved]
  - Infusion site bruising [Not Recovered/Not Resolved]
  - Infusion site discharge [Unknown]
  - Malaise [Unknown]
  - Panic disorder [Unknown]
  - Therapeutic product effect incomplete [Unknown]
  - Dry skin [Unknown]
  - Infusion site scar [Not Recovered/Not Resolved]
  - Infusion site induration [Unknown]
  - Infusion site reaction [Not Recovered/Not Resolved]
  - Nasopharyngitis [Unknown]
  - Infusion site induration [Recovering/Resolving]

NARRATIVE: CASE EVENT DATE: 20250101
